FAERS Safety Report 9919896 (Version 1)
Quarter: 2014Q1

REPORT INFORMATION
  Report Type: Spontaneous
  Country: US (occurrence: US)
  Receive Date: 20140224
  Receipt Date: 20140224
  Transmission Date: 20141002
  Serious: Yes (Death, Other)
  Sender: FDA-Public Use
  Company Number: US-BAYER-2014-025485

PATIENT
  Age: 62 Year
  Sex: Female
  Weight: 79 kg

DRUGS (4)
  1. BAYER GENUINE ASPIRIN ORIGINAL STRENGTH [Suspect]
     Dosage: 1 DF, QD
     Route: 048
     Dates: end: 1970
  2. BAYER CHEWABLE LOW DOSE BABY ASPIRIN TABLET ORANGE [Suspect]
     Dosage: 1 DF, QD
     Route: 048
     Dates: start: 1970
  3. POTASSIUM [Concomitant]
  4. RITALIN [Concomitant]

REACTIONS (3)
  - Myocardial infarction [Fatal]
  - Ulcer [None]
  - Gastric haemorrhage [None]
